FAERS Safety Report 5324000-2 (Version None)
Quarter: 2007Q2

REPORT INFORMATION
  Report Type: 
  Country: None (occurrence: None)
  Receive Date: 20070509
  Receipt Date: 20070509
  Transmission Date: 20071010
  Serious: Yes (Hospitalization)
  Sender: FDA-Public Use
  Company Number: None

PATIENT
  Sex: Male
  Weight: 67 kg

DRUGS (2)
  1. SEROQUEL [Suspect]
     Indication: MENTAL DISORDER
  2. RISPERDAL [Suspect]
     Indication: MENTAL DISORDER

REACTIONS (3)
  - HEADACHE [None]
  - NEUROLEPTIC MALIGNANT SYNDROME [None]
  - VISION BLURRED [None]
